FAERS Safety Report 5128287-0 (Version None)
Quarter: 2006Q4

REPORT INFORMATION
  Report Type: 
  Country: None (occurrence: None)
  Receive Date: 20061017
  Receipt Date: 20061010
  Transmission Date: 20070319
  Serious: Yes (Other)
  Sender: FDA-Public Use
  Company Number: 2006UW19625

PATIENT
  Age: 73 Year
  Sex: Female

DRUGS (11)
  1. ARIMIDEX [Suspect]
     Indication: BREAST CANCER
     Route: 048
     Dates: start: 20040101
  2. EVISTA [Interacting]
     Indication: BONE DENSITY DECREASED
  3. SYNTHROID [Concomitant]
  4. PRILOSEC [Concomitant]
  5. PLAVIX [Concomitant]
  6. CARDIZEM [Concomitant]
  7. LIPITOR [Concomitant]
  8. SPIRIVA [Concomitant]
  9. ASMANEX TWISTHALER [Concomitant]
  10. NASONEX [Concomitant]
  11. VITAMINS [Concomitant]

REACTIONS (7)
  - DRUG INTERACTION [None]
  - HYSTERECTOMY [None]
  - MUSCULAR WEAKNESS [None]
  - OSTEOPENIA [None]
  - OSTEOPOROSIS [None]
  - POSTOPERATIVE ADHESION [None]
  - STAPHYLOCOCCAL INFECTION [None]
